FAERS Safety Report 25119443 (Version 1)
Quarter: 2025Q1

REPORT INFORMATION
  Report Type: Spontaneous
  Country: GB (occurrence: GB)
  Receive Date: 20250325
  Receipt Date: 20250325
  Transmission Date: 20250409
  Serious: Yes (Hospitalization, Other)
  Sender: TEVA
  Company Number: None

PATIENT
  Age: 77 Year
  Sex: Female
  Weight: 103 kg

DRUGS (7)
  1. LEVOTHYROXINE [Suspect]
     Active Substance: LEVOTHYROXINE
     Indication: Hypothyroidism
     Dosage: DAILY DOSE: 125MCG
     Route: 065
     Dates: start: 20090101
  2. ATORVASTATIN [Concomitant]
     Active Substance: ATORVASTATIN
     Indication: Hypercholesterolaemia
     Dates: start: 20171117
  3. PREGABALIN [Concomitant]
     Active Substance: PREGABALIN
     Indication: Lumbar spinal stenosis
     Dates: start: 20240508
  4. AMITRIPTYLINE [Concomitant]
     Active Substance: AMITRIPTYLINE
     Indication: Vulvovaginal pain
     Dates: start: 20221118
  5. CALCIUM CARBONATE\CHOLECALCIFEROL [Suspect]
     Active Substance: CALCIUM CARBONATE\CHOLECALCIFEROL
     Indication: Adverse drug reaction
     Route: 065
     Dates: start: 20180420
  6. MIRABEGRON [Concomitant]
     Active Substance: MIRABEGRON
     Indication: Hypertonic bladder
     Dates: end: 20240104
  7. LANSOPRAZOLE [Concomitant]
     Active Substance: LANSOPRAZOLE
     Indication: Hiatus hernia
     Dates: start: 202302

REACTIONS (2)
  - Medication error [Unknown]
  - Drug interaction [Recovering/Resolving]

NARRATIVE: CASE EVENT DATE: 20240505
